FAERS Safety Report 5633419-1 (Version None)
Quarter: 2008Q1

REPORT INFORMATION
  Report Type: 
  Country: None (occurrence: None)
  Receive Date: 20080221
  Receipt Date: 20080209
  Transmission Date: 20080703
  Serious: Yes (Other)
  Sender: FDA-Public Use
  Company Number: US-PFIZER INC-2008014680

PATIENT
  Sex: Female
  Weight: 72.6 kg

DRUGS (7)
  1. CHANTIX [Suspect]
     Indication: SMOKING CESSATION THERAPY
     Dates: start: 20080101, end: 20080207
  2. TOPAMAX [Concomitant]
     Indication: BIPOLAR DISORDER
  3. ABILIFY [Concomitant]
  4. SERAX [Concomitant]
  5. PROZAC [Concomitant]
     Indication: BIPOLAR DISORDER
  6. ATENOLOL [Concomitant]
     Indication: MIGRAINE
  7. ATENOLOL [Concomitant]
     Indication: MYOCARDIAL INFARCTION

REACTIONS (3)
  - HYPOMANIA [None]
  - NEPHROLITHIASIS [None]
  - PANCREATITIS RELAPSING [None]
